FAERS Safety Report 9869725 (Version 1)
Quarter: 2014Q1

REPORT INFORMATION
  Report Type: Spontaneous
  Country: US (occurrence: US)
  Receive Date: 20140205
  Receipt Date: 20140205
  Transmission Date: 20141002
  Serious: No
  Sender: FDA-Public Use
  Company Number: US-GLAXOSMITHKLINE-A1014612A

PATIENT
  Sex: Male

DRUGS (5)
  1. ARIXTRA [Suspect]
     Indication: COAGULOPATHY
     Dosage: 7.5MG PER DAY
     Route: 058
     Dates: start: 2012
  2. METOPROLOL [Concomitant]
  3. LIPITOR [Concomitant]
  4. LOVAZA [Concomitant]
  5. UNKNOWN MEDICATION [Concomitant]
     Indication: BLOOD TRIGLYCERIDES

REACTIONS (5)
  - Agitation [Unknown]
  - Sensory disturbance [Unknown]
  - Increased tendency to bruise [Unknown]
  - Skin haemorrhage [Unknown]
  - Feeling abnormal [Unknown]
